FAERS Safety Report 11750744 (Version 1)
Quarter: 2015Q4

REPORT INFORMATION
  Report Type: Spontaneous
  Country: FR (occurrence: None)
  Receive Date: 20151118
  Receipt Date: 20151118
  Transmission Date: 20160304
  Serious: Yes (Life-Threatening, Hospitalization, Other)
  Sender: FDA-Public Use
  Company Number: FR-MDT-ADR-2015-02180

PATIENT
  Age: 36 Year
  Sex: Female

DRUGS (2)
  1. BACLOFEN INTRATHECAL (BACLOFEN) AMPOULE [Suspect]
     Active Substance: BACLOFEN
  2. LEPONEX (CLOZAPINE) TABLET [Suspect]
     Active Substance: CLOZAPINE

REACTIONS (16)
  - Hypotension [None]
  - Bulimia nervosa [None]
  - Hallucination [None]
  - Toxicity to various agents [None]
  - Heart rate increased [None]
  - Coma scale abnormal [None]
  - Hypothermia [None]
  - Psychomotor hyperactivity [None]
  - Palpitations [None]
  - Confusional state [None]
  - Pneumonia aspiration [None]
  - Coma [None]
  - Mental fatigue [None]
  - Fatigue [None]
  - Suicidal ideation [None]
  - Drug abuse [None]
